FAERS Safety Report 15718749 (Version 1)
Quarter: 2018Q4

REPORT INFORMATION
  Report Type: Spontaneous
  Country: US (occurrence: US)
  Receive Date: 20181213
  Receipt Date: 20181213
  Transmission Date: 20190205
  Serious: No
  Sender: FDA-Public Use
  Company Number: US-GLAXOSMITHKLINE-US2018GSK213731

PATIENT
  Sex: Female

DRUGS (1)
  1. BENLYSTA [Suspect]
     Active Substance: BELIMUMAB
     Indication: SYSTEMIC LUPUS ERYTHEMATOSUS
     Dosage: UNK

REACTIONS (7)
  - Adverse drug reaction [Unknown]
  - Feeling hot [Unknown]
  - Fatigue [Unknown]
  - Condition aggravated [Unknown]
  - Peripheral swelling [Unknown]
  - Skin exfoliation [Unknown]
  - Pain of skin [Unknown]
